FAERS Safety Report 6362115-0 (Version None)
Quarter: 2009Q3

REPORT INFORMATION
  Report Type: 
  Country: None (occurrence: None)
  Receive Date: 20090918
  Receipt Date: 20090911
  Transmission Date: 20100115
  Serious: Yes (Hospitalization, Other)
  Sender: FDA-Public Use
  Company Number: US-ELI_LILLY_AND_COMPANY-US200908002275

PATIENT
  Sex: Male

DRUGS (11)
  1. HUMATROPE [Suspect]
     Indication: GROWTH RETARDATION
     Dosage: 1.8 MG, UNKNOWN
     Dates: start: 20080818
  2. HUMATROPE [Suspect]
     Dosage: 2 MG, UNKNOWN
     Dates: start: 20080901
  3. STRATTERA [Suspect]
     Dosage: 25 MG, UNKNOWN
     Dates: start: 20050101, end: 20090501
  4. ADDERALL XR 30 [Concomitant]
     Dosage: 25 MG, DAILY (1/D)
  5. CLONIDINE [Concomitant]
     Dosage: 0.1 MG, OTHER
  6. ZOLOFT [Concomitant]
     Dosage: 50 MG, EACH MORNING
  7. ZOLOFT [Concomitant]
     Dosage: 100 MG, EACH EVENING
  8. CLOMIPRAMINE [Concomitant]
     Dosage: 150 MG, UNKNOWN
  9. ABILIFY [Concomitant]
     Dosage: 25 MG, DAILY (1/D)
  10. RITALIN [Concomitant]
     Dosage: UNK, UNKNOWN
     Dates: end: 20090501
  11. DAYTRANA [Concomitant]
     Dosage: UNK, UNKNOWN
     Dates: end: 20090501

REACTIONS (3)
  - AGGRESSION [None]
  - ANGER [None]
  - MEDICATION ERROR [None]
